FAERS Safety Report 7148972-9 (Version None)
Quarter: 2010Q4

REPORT INFORMATION
  Report Type: 
  Country: None (occurrence: None)
  Receive Date: 20101209
  Receipt Date: 20101130
  Transmission Date: 20110411
  Serious: Yes (Hospitalization)
  Sender: FDA-Public Use
  Company Number: US-AMGEN-USASP2010007639

PATIENT

DRUGS (11)
  1. PROCRIT [Suspect]
     Indication: ANAEMIA
     Dosage: 40000 IU, QD
     Route: 058
     Dates: start: 20070101
  2. CALCIUM [Concomitant]
     Indication: BLOOD CALCIUM DECREASED
     Dosage: 600 MG, QD
  3. FOLIC ACID [Concomitant]
     Indication: FOLATE DEFICIENCY
     Dosage: 1 MG, QD
  4. CITALOPRAM [Concomitant]
     Indication: DEPRESSION
     Dosage: 20 MG, QD
  5. VESICARE [Concomitant]
     Indication: URINARY INCONTINENCE
     Dosage: 10 MG, QD
     Route: 048
  6. SIMVASTATIN [Concomitant]
     Indication: BLOOD CHOLESTEROL INCREASED
     Dosage: 20 MG, QD
     Route: 048
  7. BYETTA [Concomitant]
     Indication: BLOOD GLUCOSE ABNORMAL
     Dosage: UNK
     Route: 058
  8. ERGOCALCIFEROL [Concomitant]
     Indication: VITAMIN D ABNORMAL
     Dosage: UNK UNK, QMO
     Route: 048
  9. LAXATIVE [Concomitant]
     Indication: CONSTIPATION
     Dosage: UNK UNK, QD
     Route: 048
  10. HUMULIN                            /00646001/ [Concomitant]
     Indication: DIABETES MELLITUS
     Dosage: UNK
     Route: 058
  11. LANTUS [Concomitant]
     Indication: DIABETES MELLITUS
     Dosage: UNK
     Route: 058

REACTIONS (5)
  - HYSTERECTOMY [None]
  - LEG AMPUTATION [None]
  - POSTOPERATIVE THROMBOSIS [None]
  - TOE AMPUTATION [None]
  - WEIGHT DECREASED [None]
